FAERS Safety Report 17351359 (Version 2)
Quarter: 2021Q2

REPORT INFORMATION
  Report Type: Report from Study
  Country: None (occurrence: JP)
  Receive Date: 20200130
  Receipt Date: 20210426
  Transmission Date: 20210716
  Serious: Yes (Death)
  Sender: FDA-Public Use
  Company Number: JP-ABBVIE-20P-087-3257034-00

PATIENT
  Age: 71 Year
  Sex: Male
  Weight: 43 kg

DRUGS (11)
  1. CARBOCISTEINE [Concomitant]
     Active Substance: CARBOCYSTEINE
     Indication: PRODUCT USED FOR UNKNOWN INDICATION
     Dosage: 3 GRAM
     Route: 065
     Dates: end: 20190215
  2. DESYREL [Concomitant]
     Active Substance: TRAZODONE HYDROCHLORIDE
     Indication: PRODUCT USED FOR UNKNOWN INDICATION
     Dosage: 25 MILLIGRAM
     Route: 065
     Dates: end: 20190215
  3. ZYPREXA [Concomitant]
     Active Substance: OLANZAPINE
     Indication: PRODUCT USED FOR UNKNOWN INDICATION
     Dosage: 0.25 GRAM
     Route: 065
     Dates: end: 20190215
  4. LEXOTAN [Concomitant]
     Active Substance: BROMAZEPAM
     Indication: PRODUCT USED FOR UNKNOWN INDICATION
     Dosage: 6 MILLIGRAM
     Route: 065
     Dates: end: 20190215
  5. URSO [Concomitant]
     Active Substance: URSODIOL
     Indication: PRODUCT USED FOR UNKNOWN INDICATION
     Dosage: 6 GRAM
     Route: 065
     Dates: end: 20190215
  6. MYSLEE [Concomitant]
     Active Substance: ZOLPIDEM TARTRATE
     Indication: PRODUCT USED FOR UNKNOWN INDICATION
     Dosage: 5 MILLIGRAM
     Route: 065
     Dates: end: 20190215
  7. CONTOMIN [CHLORPROMAZINE HYDROCHLORIDE] [Concomitant]
     Indication: PRODUCT USED FOR UNKNOWN INDICATION
     Dosage: 87.5 MILLIGRAM
     Route: 065
     Dates: end: 20190215
  8. CLARITHROMYCIN. [Concomitant]
     Active Substance: CLARITHROMYCIN
     Indication: PRODUCT USED FOR UNKNOWN INDICATION
     Dosage: 1 GRAM
     Route: 065
     Dates: end: 20190215
  9. BIO?THREE [Concomitant]
     Active Substance: HERBALS
     Indication: PRODUCT USED FOR UNKNOWN INDICATION
     Dosage: 3 GRAM
     Route: 065
     Dates: end: 20190215
  10. LEUPLIN [Suspect]
     Active Substance: LEUPROLIDE ACETATE
     Indication: BULBOSPINAL MUSCULAR ATROPHY CONGENITAL
     Dosage: 11.25 MILLIGRAM, Q3MONTHS
     Route: 058
     Dates: start: 20181129, end: 20181129
  11. MUCOSAL [AMBROXOL HYDROCHLORIDE] [Concomitant]
     Indication: PRODUCT USED FOR UNKNOWN INDICATION
     Dosage: 3 GRAM
     Route: 065
     Dates: end: 20190215

REACTIONS (2)
  - Injection site reaction [Recovered/Resolved]
  - Bulbospinal muscular atrophy congenital [Fatal]

NARRATIVE: CASE EVENT DATE: 20181130
